FAERS Safety Report 24620993 (Version 1)
Quarter: 2024Q4

REPORT INFORMATION
  Report Type: Spontaneous
  Country: US (occurrence: None)
  Receive Date: 20241114
  Receipt Date: 20241114
  Transmission Date: 20250115
  Serious: Yes (Other)
  Sender: Public
  Company Number: None

PATIENT
  Age: 3 Year
  Sex: Male
  Weight: 14 kg

DRUGS (13)
  1. RIVAROXABAN [Suspect]
     Active Substance: RIVAROXABAN
     Indication: Thrombosis prophylaxis
     Dosage: FREQUENCY : TWICE A DAY;?
     Route: 048
     Dates: start: 20241111, end: 20241113
  2. CYPROHEPTADINE [Concomitant]
     Active Substance: CYPROHEPTADINE
     Dates: start: 20240820
  3. FAMOTIDINE [Concomitant]
     Active Substance: FAMOTIDINE
     Dates: start: 20240919
  4. FUROSEMIDE [Concomitant]
     Active Substance: FUROSEMIDE
     Dates: start: 20241108
  5. ACETAMINOPHEN [Concomitant]
     Active Substance: ACETAMINOPHEN
     Dates: start: 20241107, end: 20241112
  6. GLYCERIN SUPPOSITORY [Concomitant]
     Active Substance: GLYCERIN
     Dates: start: 20241111, end: 20241111
  7. LACTULOSE [Concomitant]
     Active Substance: LACTULOSE
     Dates: start: 20240322
  8. MORPHINE [Concomitant]
     Active Substance: MORPHINE
     Dates: start: 20241107
  9. ONDANSETRON [Concomitant]
     Active Substance: ONDANSETRON
     Dates: start: 20241111, end: 20241112
  10. OXYCODONE [Concomitant]
     Active Substance: OXYCODONE
     Dates: start: 20241112, end: 20241113
  11. MIRALAX [Concomitant]
     Active Substance: POLYETHYLENE GLYCOL 3350
     Dates: start: 20241112, end: 20241112
  12. SENNA [Concomitant]
     Active Substance: SENNA LEAF\SENNOSIDES\SENNOSIDES A AND B
     Dates: start: 20240216
  13. SILDENAFIL [Concomitant]
     Active Substance: SILDENAFIL
     Dates: start: 20240625

REACTIONS (1)
  - Acute hepatic failure [None]

NARRATIVE: CASE EVENT DATE: 20241113
